FAERS Safety Report 23241074 (Version 2)
Quarter: 2023Q4

REPORT INFORMATION
  Report Type: Spontaneous
  Country: CZ (occurrence: CZ)
  Receive Date: 20231129
  Receipt Date: 20231205
  Transmission Date: 20240109
  Serious: Yes (Other)
  Sender: FDA-Public Use
  Company Number: CZ-MYLANLABS-2023M1123471

PATIENT
  Age: 27 Year
  Sex: Female

DRUGS (2)
  1. CYCLOSPORINE [Suspect]
     Active Substance: CYCLOSPORINE
     Indication: Aplastic anaemia
     Dosage: UNK
     Route: 065
  2. CYCLOSPORINE [Suspect]
     Active Substance: CYCLOSPORINE
     Indication: Paroxysmal nocturnal haemoglobinuria

REACTIONS (5)
  - Paroxysmal nocturnal haemoglobinuria [Recovered/Resolved]
  - Condition aggravated [Recovered/Resolved]
  - Intravascular haemolysis [Recovered/Resolved]
  - Portal vein thrombosis [Unknown]
  - Thrombocytopenia [Unknown]
